FAERS Safety Report 15643805 (Version 1)
Quarter: 2018Q4

REPORT INFORMATION
  Report Type: Spontaneous
  Country: US (occurrence: US)
  Receive Date: 20181121
  Receipt Date: 20181121
  Transmission Date: 20190205
  Serious: No
  Sender: FDA-Public Use
  Company Number: US-PFIZER INC-2018478778

PATIENT
  Age: 67 Year
  Sex: Female
  Weight: 51.25 kg

DRUGS (1)
  1. CELECOXIB. [Suspect]
     Active Substance: CELECOXIB
     Indication: OSTEOARTHRITIS
     Dosage: UNK (ONCE A DAY OR EVERY OTHER DAY)

REACTIONS (2)
  - Gastric disorder [Unknown]
  - Intentional underdose [Unknown]
